FAERS Safety Report 22224096 (Version 1)
Quarter: 2023Q2

REPORT INFORMATION
  Report Type: Spontaneous
  Country: CA (occurrence: CA)
  Receive Date: 20230418
  Receipt Date: 20230418
  Transmission Date: 20230722
  Serious: Yes (Other)
  Sender: FDA-Public Use
  Company Number: CA-ELI_LILLY_AND_COMPANY-CA202304006195

PATIENT
  Age: 15 Year
  Sex: Female
  Weight: 55 kg

DRUGS (5)
  1. PROZAC [Suspect]
     Active Substance: FLUOXETINE HYDROCHLORIDE
     Indication: Anxiety
     Dosage: 10 MG, UNKNOWN
     Route: 048
  2. PROZAC [Suspect]
     Active Substance: FLUOXETINE HYDROCHLORIDE
     Dosage: 30 MG, DAILY
     Route: 048
  3. PROZAC [Suspect]
     Active Substance: FLUOXETINE HYDROCHLORIDE
     Dosage: 20 MG, DAILY
     Route: 048
  4. PROZAC [Suspect]
     Active Substance: FLUOXETINE HYDROCHLORIDE
     Dosage: 10 MG, DAILY
     Route: 048
  5. PROZAC [Suspect]
     Active Substance: FLUOXETINE HYDROCHLORIDE
     Dosage: 20 MG, DAILY
     Route: 048

REACTIONS (19)
  - Tremor [Unknown]
  - Blepharospasm [Unknown]
  - Confusional state [Unknown]
  - Delirium [Unknown]
  - Depression [Unknown]
  - Disorientation [Unknown]
  - Dyspnoea [Unknown]
  - Gait disturbance [Unknown]
  - Hallucination, visual [Unknown]
  - Hypoaesthesia [Unknown]
  - Insomnia [Unknown]
  - Intentional self-injury [Unknown]
  - Mania [Unknown]
  - Mood swings [Unknown]
  - Musculoskeletal stiffness [Unknown]
  - Mydriasis [Unknown]
  - Screaming [Unknown]
  - Seizure like phenomena [Unknown]
  - Somatic symptom disorder [Unknown]
